FAERS Safety Report 8112817-0 (Version None)
Quarter: 2012Q1

REPORT INFORMATION
  Report Type: 
  Country: None (occurrence: None)
  Receive Date: 20120203
  Receipt Date: 20120126
  Transmission Date: 20120608
  Serious: Yes (Other)
  Sender: FDA-Public Use
  Company Number: US-JNJFOC-20120112696

PATIENT
  Age: 80 Year
  Sex: Male

DRUGS (1)
  1. XARELTO [Suspect]
     Indication: ILL-DEFINED DISORDER
     Route: 048
     Dates: start: 20120123, end: 20120125

REACTIONS (1)
  - RENAL IMPAIRMENT [None]
